FAERS Safety Report 6343231-6 (Version None)
Quarter: 2009Q3

REPORT INFORMATION
  Report Type: 
  Country: None (occurrence: None)
  Receive Date: 20090903
  Receipt Date: 20090819
  Transmission Date: 20100115
  Serious: Yes (Hospitalization)
  Sender: FDA-Public Use
  Company Number: 2009BM000193

PATIENT
  Age: 22 Year
  Sex: Male

DRUGS (1)
  1. NAGLAZYME [Suspect]
     Indication: MUCOPOLYSACCHARIDOSIS VI
     Dosage: IVDRIP
     Route: 041
     Dates: start: 20050720

REACTIONS (3)
  - PNEUMONIA [None]
  - RIGHT VENTRICULAR FAILURE [None]
  - VARICELLA [None]
